FAERS Safety Report 10196131 (Version 4)
Quarter: 2014Q4

REPORT INFORMATION
  Report Type: Spontaneous
  Country: JP (occurrence: JP)
  Receive Date: 20140527
  Receipt Date: 20141118
  Transmission Date: 20150528
  Serious: Yes (Life-Threatening, Hospitalization)
  Sender: FDA-Public Use
  Company Number: JP-ELI_LILLY_AND_COMPANY-JP201405005046

PATIENT
  Age: 80 Year
  Sex: Male
  Weight: 60 kg

DRUGS (10)
  1. DIART [Concomitant]
     Active Substance: AZOSEMIDE
     Dosage: 30 MG, EACH MORNING
     Route: 048
  2. THYRADIN S [Concomitant]
     Active Substance: LEVOTHYROXINE SODIUM
     Dosage: 50 UG, TID
     Route: 048
  3. FAMOTIDINE. [Concomitant]
     Active Substance: FAMOTIDINE
     Dosage: 0.5 G, BID
     Route: 048
  4. LYRICA [Concomitant]
     Active Substance: PREGABALIN
     Dosage: 75 MG, BID
     Route: 048
  5. PREDNISOLONE. [Concomitant]
     Active Substance: PREDNISOLONE
     Dosage: 5 MG, EACH MORNING
     Route: 048
  6. BAYASPIRIN [Concomitant]
     Active Substance: ASPIRIN
     Dosage: 100 MG, EACH MORNING
     Route: 048
  7. URINORM [Concomitant]
     Active Substance: BENZBROMARONE
     Dosage: 50 MG, EACH MORNING
     Route: 048
  8. URALYT U                           /06402701/ [Concomitant]
     Dosage: 1 G, TID
     Route: 048
  9. PROCYLIN [Concomitant]
     Active Substance: BERAPROST SODIUM
     Dosage: 40 UG, TID
     Route: 048
  10. FORTEO [Suspect]
     Active Substance: TERIPARATIDE
     Indication: OSTEOPOROSIS
     Dosage: 20 UG, QD
     Route: 058
     Dates: start: 20140513, end: 20140515

REACTIONS (6)
  - Acute kidney injury [Recovered/Resolved]
  - Diarrhoea [Recovered/Resolved]
  - Pyrexia [Recovered/Resolved]
  - Respiratory disorder [Recovered/Resolved]
  - Blood pressure decreased [Recovered/Resolved]
  - Vomiting [Recovered/Resolved]

NARRATIVE: CASE EVENT DATE: 20140513
